FAERS Safety Report 6133338-0 (Version None)
Quarter: 2009Q1

REPORT INFORMATION
  Report Type: 
  Country: None (occurrence: None)
  Receive Date: 20090326
  Receipt Date: 20090318
  Transmission Date: 20090719
  Serious: Yes (Hospitalization)
  Sender: FDA-Public Use
  Company Number: US-BAYER-200910676BCC

PATIENT
  Age: 44 Year
  Sex: Female
  Weight: 109 kg

DRUGS (4)
  1. EXTRA STRENGTH ALKA-SELTZER [Suspect]
     Indication: HEADACHE
     Dosage: 14 TABLETS (7,000 MG OF ACETYLSALICYLIC ACID)
     Dates: start: 20090304, end: 20090305
  2. HYOMAX [Concomitant]
  3. CITALOPRAM HYDROBROMIDE [Concomitant]
     Dosage: TOTAL DAILY DOSE: 10 MG  UNIT DOSE: 20 MG
  4. PERPHENAZINE [Concomitant]
     Dosage: TOTAL DAILY DOSE: 32 MG  UNIT DOSE: 16 MG

REACTIONS (4)
  - ABDOMINAL DISTENSION [None]
  - OEDEMA PERIPHERAL [None]
  - PULMONARY HYPERTENSION [None]
  - WHEEZING [None]
